FAERS Safety Report 14503754 (Version 2)
Quarter: 2018Q1

REPORT INFORMATION
  Report Type: Spontaneous
  Country: BR (occurrence: BR)
  Receive Date: 20180208
  Receipt Date: 20180227
  Transmission Date: 20180509
  Serious: Yes (Other)
  Sender: FDA-Public Use
  Company Number: BR-CELGENEUS-BRA-20180202114

PATIENT
  Sex: Female

DRUGS (6)
  1. ONDANSENTRON [Concomitant]
     Indication: PRODUCT USED FOR UNKNOWN INDICATION
     Route: 065
  2. LEVAMLODIPINE [Concomitant]
     Active Substance: LEVAMLODIPINE
     Indication: PRODUCT USED FOR UNKNOWN INDICATION
     Route: 065
  3. DIPIRONE [Concomitant]
     Active Substance: METAMIZOLE SODIUM
     Indication: PAIN
     Route: 065
  4. VIDAZA [Suspect]
     Active Substance: AZACITIDINE
     Indication: MYELODYSPLASTIC SYNDROME
     Route: 065
     Dates: start: 20170420
  5. LOSARTAN HYDROCHLOROTHIAZIDE [Concomitant]
     Active Substance: HYDROCHLOROTHIAZIDE\LOSARTAN POTASSIUM
     Indication: PRODUCT USED FOR UNKNOWN INDICATION
     Dosage: 2 TABLET
     Route: 065
  6. MORPHINE [Concomitant]
     Active Substance: MORPHINE
     Indication: PAIN
     Route: 065

REACTIONS (8)
  - Injection site exfoliation [Unknown]
  - Injection site pain [Unknown]
  - Urinary tract infection [Unknown]
  - Injection site induration [Unknown]
  - Injection site pruritus [Unknown]
  - Injection site erythema [Unknown]
  - Arthralgia [Unknown]
  - Dyspepsia [Unknown]

NARRATIVE: CASE EVENT DATE: 2017
